FAERS Safety Report 22955173 (Version 4)
Quarter: 2024Q2

REPORT INFORMATION
  Report Type: Spontaneous
  Country: US (occurrence: US)
  Receive Date: 20230918
  Receipt Date: 20240614
  Transmission Date: 20240717
  Serious: No
  Sender: FDA-Public Use
  Company Number: US-Calliditas-2023CAL01181

PATIENT
  Age: 46 Year
  Sex: Female

DRUGS (1)
  1. TARPEYO [Suspect]
     Active Substance: BUDESONIDE
     Indication: IgA nephropathy
     Dosage: 16 MG (4 MG CAPSULES) ONCE DAILY
     Route: 048
     Dates: start: 20230817

REACTIONS (3)
  - Muscle spasms [Not Recovered/Not Resolved]
  - Dehydration [Not Recovered/Not Resolved]
  - Weight increased [Recovering/Resolving]

NARRATIVE: CASE EVENT DATE: 20230817
